FAERS Safety Report 23881989 (Version 1)
Quarter: 2024Q2

REPORT INFORMATION
  Report Type: Spontaneous
  Country: DE (occurrence: DE)
  Receive Date: 20240521
  Receipt Date: 20240521
  Transmission Date: 20240715
  Serious: No
  Sender: FDA-Public Use
  Company Number: DE-MEN-2024-095104

PATIENT
  Sex: Male

DRUGS (1)
  1. RANEXA [Suspect]
     Active Substance: RANOLAZINE
     Dosage: 750 MG, QD
     Route: 048
     Dates: start: 202403

REACTIONS (2)
  - Drug effect less than expected [Unknown]
  - No adverse event [Unknown]
